FAERS Safety Report 6075465-2 (Version None)
Quarter: 2009Q1

REPORT INFORMATION
  Report Type: 
  Country: None (occurrence: None)
  Receive Date: 20090212
  Receipt Date: 20090211
  Transmission Date: 20090719
  Serious: Yes (Hospitalization)
  Sender: FDA-Public Use
  Company Number: B0547512A

PATIENT
  Age: 69 Year
  Sex: Male

DRUGS (6)
  1. ZOPHREN [Suspect]
     Dosage: 8MG TWICE PER DAY
     Route: 042
     Dates: start: 20080428
  2. OXALIPLATINE [Suspect]
     Dosage: 130MG PER DAY
     Route: 042
     Dates: start: 20080429
  3. AVASTIN [Suspect]
     Dosage: 275MG PER DAY
     Route: 042
     Dates: start: 20080429
  4. FLUOROURACIL [Suspect]
     Dosage: 3100MG PER DAY
     Route: 042
     Dates: start: 20080429
  5. SOLU-MEDROL [Suspect]
     Dosage: 40MG PER DAY
     Route: 042
     Dates: start: 20080429
  6. CALCIUM LEVOFOLINATE [Suspect]
     Dosage: 170MG PER DAY
     Route: 042
     Dates: start: 20080429

REACTIONS (3)
  - CONFUSIONAL STATE [None]
  - MOVEMENT DISORDER [None]
  - TOXIC ENCEPHALOPATHY [None]
